FAERS Safety Report 20407551 (Version 2)
Quarter: 2022Q1

REPORT INFORMATION
  Report Type: Spontaneous
  Country: US (occurrence: US)
  Receive Date: 20220131
  Receipt Date: 20220221
  Transmission Date: 20220423
  Serious: Yes (Hospitalization)
  Sender: FDA-Public Use
  Company Number: US-SA-SAC20220125001100

PATIENT
  Age: 79 Year
  Sex: Female

DRUGS (22)
  1. DUPIXENT [Suspect]
     Active Substance: DUPILUMAB
     Indication: Asthma
     Dosage: 300 MG, QOW
     Route: 058
     Dates: start: 20210929
  2. DUPIXENT [Suspect]
     Active Substance: DUPILUMAB
     Indication: Nasal polyps
  3. GABAPENTIN [Concomitant]
     Active Substance: GABAPENTIN
  4. TOUJEO [Concomitant]
     Active Substance: INSULIN GLARGINE
  5. BREO ELLIPTA [Concomitant]
     Active Substance: FLUTICASONE FUROATE\VILANTEROL TRIFENATATE
     Dosage: 1000MG
  6. SIMVASTATIN [Concomitant]
     Active Substance: SIMVASTATIN
  7. LOSARTAN POTASSIUM [Concomitant]
     Active Substance: LOSARTAN POTASSIUM
     Indication: Hypertension
  8. ALBUTEROL SULFATE [Concomitant]
     Active Substance: ALBUTEROL SULFATE
  9. LEVOTHYROXINE [Concomitant]
     Active Substance: LEVOTHYROXINE
  10. NOVOLOG [Concomitant]
     Active Substance: INSULIN ASPART
  11. HYDROCHLOROTHIAZIDE [Concomitant]
     Active Substance: HYDROCHLOROTHIAZIDE
     Indication: Hypertension
  12. CARVEDILOL [Concomitant]
     Active Substance: CARVEDILOL
     Indication: Hypertension
  13. SUCRALFATE [Concomitant]
     Active Substance: SUCRALFATE
  14. PANTOPRAZOLE [Concomitant]
     Active Substance: PANTOPRAZOLE
  15. AMLODIPINE [Concomitant]
     Active Substance: AMLODIPINE BESYLATE
     Indication: Hypertension
  16. ELIQUIS [Concomitant]
     Active Substance: APIXABAN
  17. OZEMPIC [Concomitant]
     Active Substance: SEMAGLUTIDE
  18. ALLOPURINOL [Concomitant]
     Active Substance: ALLOPURINOL
  19. DORZOLAMIDE [Concomitant]
     Active Substance: DORZOLAMIDE
  20. CYCLOBENZAPRINE [Concomitant]
     Active Substance: CYCLOBENZAPRINE
  21. MINERALS\VITAMINS [Concomitant]
     Active Substance: MINERALS\VITAMINS
  22. NANO [Concomitant]

REACTIONS (6)
  - Knee arthroplasty [Unknown]
  - Arthropathy [Unknown]
  - Eyelid margin crusting [Unknown]
  - Nasal disorder [Unknown]
  - Eye irritation [Unknown]
  - Product use in unapproved indication [Unknown]
